FAERS Safety Report 8446490-9 (Version None)
Quarter: 2012Q2

REPORT INFORMATION
  Report Type: 
  Country: None (occurrence: None)
  Receive Date: 20120618
  Receipt Date: 20120418
  Transmission Date: 20120825
  Serious: No
  Sender: FDA-Public Use
  Company Number: US-TEVA-334298USA

PATIENT
  Sex: Female
  Weight: 61.744 kg

DRUGS (5)
  1. PROMETHAZINE [Concomitant]
     Indication: NAUSEA
     Dosage: PRN
     Route: 048
  2. FENTANYL-100 [Concomitant]
     Dosage: 12.5 MICROGRAM;
     Route: 061
     Dates: start: 20050101
  3. ESOMEPRAZOLE MAGNESIUM [Concomitant]
     Indication: GASTROOESOPHAGEAL REFLUX DISEASE
     Dosage: PRN
     Route: 048
  4. ACTIQ [Suspect]
     Indication: HEPATIC PAIN
     Route: 002
     Dates: start: 20080101, end: 20090101
  5. ZOLPIDEM TARTRATE [Concomitant]
     Indication: SLEEP DISORDER
     Route: 048

REACTIONS (4)
  - MALAISE [None]
  - NAUSEA [None]
  - DRUG PRESCRIBING ERROR [None]
  - OFF LABEL USE [None]
